FAERS Safety Report 9202840 (Version 2)
Quarter: 2013Q2

REPORT INFORMATION
  Report Type: Spontaneous
  Country: US (occurrence: US)
  Receive Date: 20130401
  Receipt Date: 20130423
  Transmission Date: 20140414
  Serious: No
  Sender: FDA-Public Use
  Company Number: US-009507513-1304USA000472

PATIENT
  Sex: 0

DRUGS (2)
  1. JANUMET XR [Suspect]
     Dosage: 50MG/1000MG, ONCE DAILY
     Route: 048
  2. LEVEMIR [Concomitant]

REACTIONS (1)
  - Hypoglycaemia [Unknown]
